FAERS Safety Report 8081508-7 (Version None)
Quarter: 2012Q1

REPORT INFORMATION
  Report Type: 
  Country: None (occurrence: None)
  Receive Date: 20120130
  Receipt Date: 20120122
  Transmission Date: 20120608
  Serious: Yes (Other)
  Sender: FDA-Public Use
  Company Number: PHEH2012US002096

PATIENT
  Sex: Female

DRUGS (1)
  1. GILENYA [Suspect]
     Indication: MULTIPLE SCLEROSIS
     Dosage: 0.5 MG, QD
     Route: 048
     Dates: start: 20111215

REACTIONS (5)
  - COUGH [None]
  - LOSS OF CONSCIOUSNESS [None]
  - HYPOPNOEA [None]
  - CHEST DISCOMFORT [None]
  - DYSPNOEA [None]
